FAERS Safety Report 5232249-2 (Version None)
Quarter: 2007Q1

REPORT INFORMATION
  Report Type: 
  Country: None (occurrence: None)
  Receive Date: 20061204
  Receipt Date: 20060807
  Transmission Date: 20070707
  Serious: No
  Sender: FDA-Public Use
  Company Number: 2006-BP-08459BP

PATIENT
  Sex: Female

DRUGS (6)
  1. SPIRIVA [Suspect]
     Indication: ASTHMA
     Dosage: 18 MCG (18 MCG,1 IN 1 D),IH
     Dates: start: 20060101
  2. ZYRTEC [Concomitant]
  3. SYNTHROID [Concomitant]
  4. ALBUTEROL [Concomitant]
  5. WELLBUTRIN [Concomitant]
  6. TRIAMTERENE/HCZ (DYAZIDE) [Concomitant]

REACTIONS (2)
  - DRY MOUTH [None]
  - SALIVARY GLAND ENLARGEMENT [None]
